FAERS Safety Report 6327824-8 (Version None)
Quarter: 2009Q3

REPORT INFORMATION
  Report Type: 
  Country: None (occurrence: None)
  Receive Date: 20090824
  Receipt Date: 20090813
  Transmission Date: 20100115
  Serious: Yes (Hospitalization)
  Sender: FDA-Public Use
  Company Number: 2009SP020393

PATIENT
  Age: 77 Year
  Sex: Female

DRUGS (7)
  1. MIRTAZAPINE [Suspect]
     Indication: DEPRESSED MOOD
     Dosage: 30 MG; QD; PO
     Route: 048
     Dates: start: 20080509
  2. PROTELOS (STRONTIUM RANELATE) (STRONTIUM) [Suspect]
     Indication: OSTEOARTHRITIS
     Dosage: 2 GM; QD; PO
     Route: 048
     Dates: start: 20080509
  3. PROTELOS (STRONTIUM RANELATE) (STRONTIUM) [Suspect]
     Indication: OSTEOPENIA
     Dosage: 2 GM; QD; PO
     Route: 048
     Dates: start: 20080509
  4. ASPIRIN [Concomitant]
  5. MOMETASONE FUROATE [Concomitant]
  6. OMACOR [Concomitant]
  7. PARACETAMOL [Concomitant]

REACTIONS (3)
  - HAEMATOMA [None]
  - INFECTION [None]
  - PLEURAL EFFUSION [None]
